FAERS Safety Report 9763816 (Version 1)
Quarter: 2013Q4

REPORT INFORMATION
  Report Type: Spontaneous
  Country: US (occurrence: US)
  Receive Date: 20131216
  Receipt Date: 20131216
  Transmission Date: 20140711
  Serious: No
  Sender: FDA-Public Use
  Company Number: US-BIOGENIDEC-2013BI113424

PATIENT
  Sex: Male

DRUGS (10)
  1. TECFIDERA [Suspect]
     Indication: MULTIPLE SCLEROSIS
     Route: 048
     Dates: start: 20131016
  2. ADVAIR HFA [Concomitant]
  3. ALBUTEROL SULFATE [Concomitant]
  4. AMPYRA [Concomitant]
  5. BUPROPION HCL [Concomitant]
  6. FISH OIL [Concomitant]
  7. SERTRALINE HCL [Concomitant]
  8. SPRIVA [Concomitant]
  9. VESICARE [Concomitant]
  10. ZOLOFT [Concomitant]

REACTIONS (1)
  - Vision blurred [Unknown]
